FAERS Safety Report 19172975 (Version 2)
Quarter: 2021Q2

REPORT INFORMATION
  Report Type: Report from Study
  Country: None (occurrence: BE)
  Receive Date: 20210423
  Receipt Date: 20210526
  Transmission Date: 20210717
  Serious: Yes (Other)
  Sender: FDA-Public Use
  Company Number: BE-ABBVIE-21K-013-3868856-00

PATIENT
  Age: 55 Year
  Sex: Female

DRUGS (1)
  1. HUMIRA [Suspect]
     Active Substance: ADALIMUMAB
     Indication: ANKYLOSING SPONDYLITIS
     Route: 058
     Dates: start: 20210218, end: 20210415

REACTIONS (4)
  - Oral fungal infection [Recovering/Resolving]
  - Abdominal pain upper [Not Recovered/Not Resolved]
  - Immunodeficiency [Unknown]
  - Benign neoplasm of adrenal gland [Unknown]

NARRATIVE: CASE EVENT DATE: 2021
